FAERS Safety Report 5146679-0 (Version None)
Quarter: 2006Q4

REPORT INFORMATION
  Report Type: 
  Country: None (occurrence: None)
  Receive Date: 20061107
  Receipt Date: 20061107
  Transmission Date: 20070319
  Serious: Yes (Hospitalization, Other)
  Sender: FDA-Public Use
  Company Number: None

PATIENT
  Age: 59 Year
  Sex: Female
  Weight: 105.7 kg

DRUGS (18)
  1. IOHEXOL 320 MGL/ML AMERSHAM HEALTH [Suspect]
     Indication: SCAN WITH CONTRAST
     Dosage: 150ML ONCE IV BOLUS
     Route: 040
     Dates: start: 20060523, end: 20060523
  2. VANCOMYCIN [Suspect]
     Indication: HIP ARTHROPLASTY
     Dosage: 1500MG EVERY 12 HOURS IV BOLUS
     Route: 040
     Dates: start: 20060517, end: 20060519
  3. FUROSEMIDE [Concomitant]
  4. QUINAPRIL [Concomitant]
  5. SIMVASTATIN [Concomitant]
  6. ATENOLOL [Concomitant]
  7. POTASSIUM CHLORIDE [Concomitant]
  8. SERTRALINE HCL [Concomitant]
  9. INSULIN REGULAR SS [Concomitant]
  10. ESOMEPRAZOLE MAGNESIUM [Concomitant]
  11. CARISOPRODOL [Concomitant]
  12. TOLTERDINE LA [Concomitant]
  13. ESTRADIOL INJ [Concomitant]
  14. PREDNISONE TAB [Concomitant]
  15. ENOXAPARIN SODIUM [Concomitant]
  16. GABAPENTIN [Concomitant]
  17. AMITRIPTYLINE HCL [Concomitant]
  18. HUMULIN 70/30 [Concomitant]

REACTIONS (5)
  - BLOOD CREATININE INCREASED [None]
  - CONTRAST MEDIA REACTION [None]
  - DRUG LEVEL INCREASED [None]
  - RENAL FAILURE ACUTE [None]
  - RETROPERITONEAL ABSCESS [None]
